FAERS Safety Report 10651803 (Version 1)
Quarter: 2014Q4

REPORT INFORMATION
  Report Type: Spontaneous
  Country: CA (occurrence: None)
  Receive Date: 20141211
  Receipt Date: 20141211
  Transmission Date: 20150529
  Serious: Yes (Other)
  Sender: FDA-Public Use
  Company Number: 2014-PEL-000382

PATIENT
  Age: 12 Year
  Sex: Male
  Weight: 85.9 kg

DRUGS (8)
  1. LOSARTAN [Suspect]
     Active Substance: LOSARTAN
  2. ROCURONIUM BROMIDE. [Concomitant]
     Active Substance: ROCURONIUM BROMIDE
  3. ANEOLOL [Suspect]
     Active Substance: ATENOLOL
  4. PROPOFOL. [Concomitant]
     Active Substance: PROPOFOL
  5. LIDOCAINE. [Concomitant]
     Active Substance: LIDOCAINE
  6. INTRAVENOUS SALINE [Concomitant]
  7. SEVOFLURANE. [Suspect]
     Active Substance: SEVOFLURANE
     Indication: MAINTENANCE OF ANAESTHESIA
  8. FENTANYL. [Concomitant]
     Active Substance: FENTANYL

REACTIONS (8)
  - Device leakage [None]
  - Blood pressure immeasurable [None]
  - Procedural hypotension [None]
  - Pulse absent [None]
  - Electrocardiogram T wave abnormal [None]
  - Hypertension [None]
  - Anaesthetic complication [None]
  - Haemodynamic instability [None]
